FAERS Safety Report 9544278 (Version 2)
Quarter: 2013Q3

REPORT INFORMATION
  Report Type: Spontaneous
  Country: US (occurrence: US)
  Receive Date: 20130923
  Receipt Date: 20130927
  Transmission Date: 20140515
  Serious: Yes (Hospitalization, Other)
  Sender: FDA-Public Use
  Company Number: US-GILEAD-2013-0083750

PATIENT
  Age: 80 Year
  Sex: Female

DRUGS (11)
  1. LETAIRIS [Suspect]
     Indication: PULMONARY ARTERIAL HYPERTENSION
     Dosage: 10 MG, UNK
     Dates: start: 20120426
  2. ALENDRONATE [Concomitant]
  3. CALCIUM + VITAMIN D [Concomitant]
  4. CARVEDILOL [Concomitant]
  5. ETODOLAC [Concomitant]
  6. FUROSEMIDE [Concomitant]
  7. LEVOTHYROXINE [Concomitant]
  8. OMEPRAZOLE [Concomitant]
  9. POTASSIUM CHLORIDE [Concomitant]
  10. PRAVASTATIN [Concomitant]
  11. TRAZODONE [Concomitant]

REACTIONS (1)
  - Pulmonary thrombosis [Recovered/Resolved]
